FAERS Safety Report 5845723-2 (Version None)
Quarter: 2008Q3

REPORT INFORMATION
  Report Type: 
  Country: None (occurrence: None)
  Receive Date: 20080731
  Receipt Date: 20080419
  Transmission Date: 20090109
  Serious: No
  Sender: FDA-Public Use
  Company Number: US200804005246

PATIENT
  Age: 67 Year
  Sex: Female
  Weight: 81.2 kg

DRUGS (3)
  1. BYETTA [Suspect]
     Indication: TYPE 2 DIABETES MELLITUS
     Dosage: 5 UG, 2/D
     Dates: start: 20080412
  2. LANTUS [Concomitant]
  3. GLYBURIDE [Concomitant]

REACTIONS (9)
  - BLOOD GLUCOSE FLUCTUATION [None]
  - BLOOD GLUCOSE INCREASED [None]
  - DECREASED APPETITE [None]
  - ENERGY INCREASED [None]
  - INJECTION SITE PAIN [None]
  - INSOMNIA [None]
  - NAUSEA [None]
  - PANIC REACTION [None]
  - WEIGHT DECREASED [None]
